FAERS Safety Report 7404624-9 (Version None)
Quarter: 2011Q2

REPORT INFORMATION
  Report Type: 
  Country: None (occurrence: None)
  Receive Date: 20110411
  Receipt Date: 20110330
  Transmission Date: 20111010
  Serious: Yes (Hospitalization)
  Sender: FDA-Public Use
  Company Number: US-BIOGENIDEC-2011BI010511

PATIENT
  Age: 62 Year
  Sex: Male

DRUGS (1)
  1. AVONEX [Suspect]
     Indication: MULTIPLE SCLEROSIS
     Route: 030
     Dates: start: 20041029

REACTIONS (5)
  - PROSTATIC OBSTRUCTION [None]
  - BLADDER DISORDER [None]
  - MUSCULAR WEAKNESS [None]
  - RENAL DISORDER [None]
  - OEDEMA PERIPHERAL [None]
